FAERS Safety Report 5279885-5 (Version None)
Quarter: 2007Q1

REPORT INFORMATION
  Report Type: 
  Country: None (occurrence: None)
  Receive Date: 20061215
  Receipt Date: 20051112
  Transmission Date: 20070707
  Serious: Yes (Other)
  Sender: FDA-Public Use
  Company Number: HQWYE548814NOV05

PATIENT
  Age: 23 Year
  Sex: Female

DRUGS (4)
  1. EFFEXOR XR [Suspect]
     Dosage: SEE IMAGE
     Dates: start: 20020101
  2. TOPAMAX [Suspect]
     Dosage: 200 MG 1X PER 1 DAY
  3. CLONAZEPAM [Concomitant]
  4. LUNESTA [Concomitant]

REACTIONS (1)
  - VENTRICULAR TACHYCARDIA [None]
